FAERS Safety Report 17747409 (Version 1)
Quarter: 2020Q2

REPORT INFORMATION
  Report Type: Spontaneous
  Country: US (occurrence: US)
  Receive Date: 20200505
  Receipt Date: 20200505
  Transmission Date: 20200714
  Serious: Yes (Other)
  Sender: FDA-Public Use
  Company Number: US-BAYER-2020-070841

PATIENT
  Sex: Female

DRUGS (1)
  1. BAYER LOW DOSE [Suspect]
     Active Substance: ASPIRIN
     Dosage: 1 DF, QD
     Route: 048

REACTIONS (4)
  - Ulcer haemorrhage [Unknown]
  - Incorrect dose administered [Unknown]
  - Adverse drug reaction [None]
  - Drug hypersensitivity [Unknown]

NARRATIVE: CASE EVENT DATE: 2001
